FAERS Safety Report 9595323 (Version 1)
Quarter: 2013Q3

REPORT INFORMATION
  Report Type: Spontaneous
  Country: US (occurrence: None)
  Receive Date: 20130927
  Receipt Date: 20130927
  Transmission Date: 20140515
  Serious: Yes (Other)
  Sender: FDA-Public Use
  Company Number: CABO-13002821

PATIENT
  Age: 73 Year
  Sex: Male
  Weight: 100 kg

DRUGS (15)
  1. COMETRIQ [Suspect]
     Indication: THYROID CANCER
     Dosage: 140 MG, QD, ORAL
     Route: 048
     Dates: start: 20130212, end: 20130223
  2. SYNTHROID (LEVOTHYROXINE SODIUM) [Concomitant]
  3. DETROL LA (TOLTERODINE L-TARTRATE) [Concomitant]
  4. UROXATRAL (ALFUZOSIN HYDROCHLORIDE) [Concomitant]
  5. MULTIVITAMIN (VITAMINS NOS) [Concomitant]
  6. VITAMIN C (CALCIUM ASCORBATE) [Concomitant]
  7. CITRACAL + D (CALCIUM CITRATE, ERGOCALCIFEROL) [Concomitant]
  8. ZOMETA (ZOLEDRONIC ACID) [Concomitant]
  9. REMERON (MIRTAZAPINE) [Concomitant]
  10. KLOR-CON (POTASSIUM CHLORIDE) [Concomitant]
  11. TOPROL (METOPROLOL SUCCINATE) [Concomitant]
  12. LISINOPRIL (LISINOPRIL DIHYDRATE) (UNKNOWN [Concomitant]
  13. ALLOPURINOL (ALLOPURINOL) [Concomitant]
  14. OMEPRAZOLE (OMEPRAZOLE) [Concomitant]
  15. ADVAIR (FLUTICASONE PROPIONATE, SALMETEROL XINAFOATE) [Concomitant]

REACTIONS (5)
  - Malignant neoplasm progression [None]
  - Restless legs syndrome [None]
  - Dry mouth [None]
  - Oral mucosal exfoliation [None]
  - Fatigue [None]
